FAERS Safety Report 23467122 (Version 1)
Quarter: 2024Q1

REPORT INFORMATION
  Report Type: Spontaneous
  Country: US (occurrence: US)
  Receive Date: 20240201
  Receipt Date: 20240201
  Transmission Date: 20240409
  Serious: Yes (Life-Threatening, Other)
  Sender: FDA-Public Use
  Company Number: US-AMGEN-USASP2024016162

PATIENT

DRUGS (8)
  1. BEVACIZUMAB [Suspect]
     Active Substance: BEVACIZUMAB
     Indication: Colorectal cancer metastatic
     Dosage: 5 MILLIGRAM/KG (ON DAYS 1 AND 15)
     Route: 042
  2. ONVANSERTIB [Concomitant]
     Active Substance: ONVANSERTIB
     Indication: Colorectal cancer metastatic
     Dosage: 12 MILLIGRAM/M^2
     Route: 048
  3. ONVANSERTIB [Concomitant]
     Active Substance: ONVANSERTIB
     Dosage: 15 MILLIGRAM/M^2
     Route: 048
  4. ONVANSERTIB [Concomitant]
     Active Substance: ONVANSERTIB
     Dosage: 18 MILLIGRAM/M^2
     Route: 048
  5. IRINOTECAN [Concomitant]
     Active Substance: IRINOTECAN
     Indication: Colorectal cancer metastatic
     Dosage: 180 MILLIGRAM/M^2
     Route: 042
  6. LEUCOVORIN [Concomitant]
     Active Substance: LEUCOVORIN\LEUCOVORIN CALCIUM
     Indication: Colorectal cancer metastatic
     Dosage: 400 MILLIGRAM/M^2
     Route: 042
  7. FLUOROURACIL [Concomitant]
     Active Substance: FLUOROURACIL
     Indication: Colorectal cancer metastatic
     Dosage: 400 MILLIGRAM/M^2 (IV BOLUS)
     Route: 042
  8. FLUOROURACIL [Concomitant]
     Active Substance: FLUOROURACIL
     Dosage: 2400 MILLIGRAM/M^2 (CONTINUOUS IV INFUSION FOR 46 HOURS))
     Route: 042

REACTIONS (21)
  - Sepsis [Unknown]
  - Leukopenia [Unknown]
  - Neutropenia [Unknown]
  - Febrile neutropenia [Unknown]
  - Hepatitis B [Unknown]
  - Thrombocytopenia [Unknown]
  - Abdominal abscess [Unknown]
  - Liver abscess [Unknown]
  - Intestinal obstruction [Unknown]
  - Alanine aminotransferase increased [Unknown]
  - Hyperphosphataemia [Unknown]
  - Aspartate aminotransferase increased [Unknown]
  - Blood alkaline phosphatase increased [Unknown]
  - Urinary tract infection [Unknown]
  - Stomatitis [Unknown]
  - Fatigue [Unknown]
  - Vomiting [Unknown]
  - Abdominal pain [Unknown]
  - Diarrhoea [Unknown]
  - Nausea [Unknown]
  - Hypertension [Unknown]
